FAERS Safety Report 4945921-6 (Version None)
Quarter: 2006Q1

REPORT INFORMATION
  Report Type: 
  Country: None (occurrence: None)
  Receive Date: 20060316
  Receipt Date: 20050922
  Transmission Date: 20060701
  Serious: Yes (Hospitalization)
  Sender: FDA-Public Use
  Company Number: JP-BOEHRINGER INGELHEIM PHARMACEUTICALS, INC.-2005-BP-16785NB

PATIENT
  Sex: Male

DRUGS (12)
  1. SPIRIVA [Suspect]
     Indication: CHRONIC OBSTRUCTIVE PULMONARY DISEASE
     Route: 055
     Dates: start: 20050816, end: 20050913
  2. HOKUNALIN TAPE (TULOBUTEROL) [Concomitant]
     Indication: CHRONIC OBSTRUCTIVE PULMONARY DISEASE
     Route: 062
     Dates: start: 20040330
  3. CALTAN (PRECIPITATED CALCIUM CARBONATE) [Concomitant]
     Route: 048
     Dates: start: 20040330
  4. LASIX [Concomitant]
     Indication: RENAL FAILURE
     Route: 048
     Dates: start: 20040330
  5. CIMETIPARL (CIMETIDINE) [Concomitant]
     Route: 048
     Dates: start: 20040330
  6. MEDETAX (ETHYL LOFLAZEPATE) [Concomitant]
     Route: 048
     Dates: start: 20050330
  7. HARNAL [Concomitant]
     Route: 048
     Dates: start: 20040330
  8. SENNOSIDE [Concomitant]
     Route: 048
     Dates: start: 20040330
  9. AMLODIN [Concomitant]
     Route: 048
     Dates: start: 20040330, end: 20050915
  10. ALEROFF (EPINASTINE HYDROCHLORIDE) [Concomitant]
     Route: 048
     Dates: start: 20040330
  11. BASEN [Concomitant]
     Indication: DIABETES MELLITUS
     Route: 048
     Dates: start: 20040330
  12. THEOPHYLLINE [Concomitant]
     Route: 048
     Dates: start: 20040320, end: 20050915

REACTIONS (1)
  - CARDIAC FAILURE CONGESTIVE [None]
